FAERS Safety Report 18035936 (Version 1)
Quarter: 2020Q3

REPORT INFORMATION
  Report Type: Spontaneous
  Country: US (occurrence: US)
  Receive Date: 20200717
  Receipt Date: 20200717
  Transmission Date: 20201103
  Serious: No
  Sender: FDA-Public Use
  Company Number: None

PATIENT
  Age: 78 Year
  Sex: Female
  Weight: 57.42 kg

DRUGS (7)
  1. MULTIVITAMIN W/MIN?FOLIC ACID [Concomitant]
  2. FERROUS SULFATE. [Concomitant]
     Active Substance: FERROUS SULFATE
  3. ONDANSETRON [Concomitant]
     Active Substance: ONDANSETRON
  4. CAPECITABINE. [Suspect]
     Active Substance: CAPECITABINE
     Indication: GASTRIC CANCER
     Route: 048
  5. ELIQUIS [Concomitant]
     Active Substance: APIXABAN
  6. OMEPRAZOLE. [Concomitant]
     Active Substance: OMEPRAZOLE
  7. PROCHLORPERAZINE MALEATE. [Concomitant]
     Active Substance: PROCHLORPERAZINE MALEATE

REACTIONS (3)
  - Diarrhoea [None]
  - Nausea [None]
  - Palmar-plantar erythrodysaesthesia syndrome [None]

NARRATIVE: CASE EVENT DATE: 20200717
